FAERS Safety Report 5494103-0 (Version None)
Quarter: 2007Q4

REPORT INFORMATION
  Report Type: 
  Country: None (occurrence: None)
  Receive Date: 20071022
  Receipt Date: 20071006
  Transmission Date: 20080405
  Serious: Yes (Death)
  Sender: FDA-Public Use
  Company Number: 2007S1000239

PATIENT

DRUGS (5)
  1. CUBICIN [Suspect]
     Indication: ENDOCARDITIS
     Dosage: 4 MG/KG; Q24H;
  2. CUBICIN [Suspect]
     Indication: PATHOGEN RESISTANCE
     Dosage: 4 MG/KG; Q24H;
  3. CUBICIN [Suspect]
     Indication: STAPHYLOCOCCAL INFECTION
     Dosage: 4 MG/KG; Q24H;
  4. GENTAMICIN [Concomitant]
  5. VANCOMYCIN [Concomitant]

REACTIONS (2)
  - DISEASE COMPLICATION [None]
  - SEPTIC EMBOLUS [None]
